FAERS Safety Report 19061010 (Version 1)
Quarter: 2021Q1

REPORT INFORMATION
  Report Type: Spontaneous
  Country: FR (occurrence: FR)
  Receive Date: 20210326
  Receipt Date: 20210326
  Transmission Date: 20210420
  Serious: Yes (Other)
  Sender: FDA-Public Use
  Company Number: FR-AUROBINDO-AUR-APL-2021-012151

PATIENT
  Age: 65 Year
  Sex: Male
  Weight: 54 kg

DRUGS (13)
  1. TRAMADOL. [Suspect]
     Active Substance: TRAMADOL
     Indication: PAIN
     Dosage: UNK
     Route: 048
     Dates: start: 20210111
  2. DOLIPRANE [Suspect]
     Active Substance: ACETAMINOPHEN
     Indication: PAIN
     Dosage: 4 GRAM, ONCE A DAY, IF NECESSARY
     Route: 048
     Dates: start: 20210101
  3. AMLODIPINE [Suspect]
     Active Substance: AMLODIPINE BESYLATE
     Indication: HYPERTENSION
     Dosage: UNK
     Route: 048
     Dates: start: 20210130
  4. DALACINE [Suspect]
     Active Substance: CLINDAMYCIN
     Indication: PRODUCT USED FOR UNKNOWN INDICATION
     Dosage: UNK
     Route: 042
     Dates: start: 20210104, end: 20210222
  5. HUMALOG [Concomitant]
     Active Substance: INSULIN LISPRO
     Indication: PRODUCT USED FOR UNKNOWN INDICATION
     Dosage: UNK
     Route: 065
  6. GABAPENTIN. [Suspect]
     Active Substance: GABAPENTIN
     Indication: NEURALGIA
     Dosage: UNK
     Route: 048
     Dates: start: 20210128
  7. RIFAMPICINE [Suspect]
     Active Substance: RIFAMPIN
     Indication: OSTEITIS
     Dosage: 600 MILLIGRAM, ONCE A DAY
     Route: 048
     Dates: start: 20210104, end: 20210217
  8. EZETIMIBE. [Concomitant]
     Active Substance: EZETIMIBE
     Indication: PRODUCT USED FOR UNKNOWN INDICATION
     Dosage: UNK
     Route: 065
  9. RAMIPRIL. [Concomitant]
     Active Substance: RAMIPRIL
     Indication: PRODUCT USED FOR UNKNOWN INDICATION
     Dosage: UNK
     Route: 065
  10. ATORVASTATIN [Suspect]
     Active Substance: ATORVASTATIN
     Indication: DYSLIPIDAEMIA
     Dosage: UNK
     Route: 048
  11. BISOPROLOL FUMARATE. [Concomitant]
     Active Substance: BISOPROLOL FUMARATE
     Indication: PRODUCT USED FOR UNKNOWN INDICATION
     Dosage: UNK
     Route: 065
  12. KARDEGIC [Concomitant]
     Active Substance: ASPIRIN DL-LYSINE
     Indication: PRODUCT USED FOR UNKNOWN INDICATION
     Dosage: UNK
     Route: 065
  13. TRESIBA [Concomitant]
     Active Substance: INSULIN DEGLUDEC
     Indication: PRODUCT USED FOR UNKNOWN INDICATION
     Dosage: UNK
     Route: 065

REACTIONS (1)
  - Cholestasis [Not Recovered/Not Resolved]

NARRATIVE: CASE EVENT DATE: 202102
